APPROVED DRUG PRODUCT: METRONIDAZOLE
Active Ingredient: METRONIDAZOLE
Strength: 1.3%
Dosage Form/Route: GEL;VAGINAL
Application: A216795 | Product #001
Applicant: ENCUBE ETHICALS PRIVATE LTD
Approved: Mar 18, 2024 | RLD: No | RS: No | Type: DISCN